FAERS Safety Report 7294126-5 (Version None)
Quarter: 2011Q1

REPORT INFORMATION
  Report Type: 
  Country: None (occurrence: None)
  Receive Date: 20110215
  Receipt Date: 20110202
  Transmission Date: 20110831
  Serious: Yes (Hospitalization)
  Sender: FDA-Public Use
  Company Number: IT-ELI_LILLY_AND_COMPANY-IT201102000752

PATIENT
  Age: 80 Year
  Sex: Male

DRUGS (5)
  1. CARBOPLATIN [Concomitant]
     Indication: LUNG NEOPLASM MALIGNANT
     Dosage: AUC{4, UNKNOWN
  2. VITAMIN B-12 [Concomitant]
  3. FOLIC ACID [Concomitant]
  4. CORTICOSTEROID NOS [Concomitant]
  5. ALIMTA [Suspect]
     Indication: LUNG NEOPLASM MALIGNANT
     Dosage: 500 MG/M2, PER CYCLE
     Dates: start: 20110112, end: 20110112

REACTIONS (2)
  - PANCYTOPENIA [None]
  - EPISTAXIS [None]
